FAERS Safety Report 25379316 (Version 1)
Quarter: 2025Q2

REPORT INFORMATION
  Report Type: Spontaneous
  Country: US (occurrence: US)
  Receive Date: 20250530
  Receipt Date: 20250530
  Transmission Date: 20250716
  Serious: No
  Sender: BOEHRINGER INGELHEIM
  Company Number: US-Komodo Health-a23aa000007strVAAQ

PATIENT
  Age: 73 Year
  Sex: Female

DRUGS (1)
  1. JARDIANCE [Suspect]
     Active Substance: EMPAGLIFLOZIN
     Indication: Type 2 diabetes mellitus

REACTIONS (4)
  - Vulvovaginal pruritus [Unknown]
  - Dizziness [Unknown]
  - Vulvovaginal erythema [Unknown]
  - Anal pruritus [Unknown]

NARRATIVE: CASE EVENT DATE: 20250101
